FAERS Safety Report 10062794 (Version 1)
Quarter: 2014Q2

REPORT INFORMATION
  Report Type: Spontaneous
  Country: CA (occurrence: CA)
  Receive Date: 20140407
  Receipt Date: 20140407
  Transmission Date: 20141212
  Serious: Yes (Other)
  Sender: FDA-Public Use
  Company Number: CA-TEVA-473384USA

PATIENT
  Age: 19 Year
  Sex: Female

DRUGS (2)
  1. PLAN B ONE-STEP [Suspect]
     Indication: POST COITAL CONTRACEPTION
     Dosage: 2 TABS (2 X 0.75MG)
     Route: 048
     Dates: start: 20140328, end: 20140328
  2. SLEEPING PILLS [Concomitant]
     Dates: start: 201403

REACTIONS (2)
  - Loss of consciousness [Recovered/Resolved]
  - Nausea [Recovered/Resolved]
